FAERS Safety Report 23235395 (Version 1)
Quarter: 2023Q4

REPORT INFORMATION
  Report Type: Spontaneous
  Country: FR (occurrence: FR)
  Receive Date: 20231128
  Receipt Date: 20231128
  Transmission Date: 20240110
  Serious: Yes (Hospitalization)
  Sender: FDA-Public Use
  Company Number: None

PATIENT
  Age: 67 Year
  Sex: Male
  Weight: 67.9 kg

DRUGS (17)
  1. LINEZOLID [Suspect]
     Active Substance: LINEZOLID
     Indication: Bronchiolitis
     Dosage: 600 MG, 2X/DAY
     Route: 042
     Dates: start: 20231015, end: 20231103
  2. LINEZOLID [Suspect]
     Active Substance: LINEZOLID
     Indication: Cardiac failure
  3. ACYCLOVIR [Concomitant]
     Active Substance: ACYCLOVIR
     Indication: Oral herpes
     Dosage: 500 MG, 3X/DAY
     Route: 042
     Dates: start: 20231018, end: 20231109
  4. INSULIN GLARGINE [Concomitant]
     Active Substance: INSULIN GLARGINE
     Indication: Diabetes mellitus inadequate control
     Dosage: 40 IU, 1X/DAY (GRADUAL INCREASE IN DOSE: 12 IU PER DAY ON 20OCT  TO 38 IU PER DAY ON 31OCT)
     Route: 058
     Dates: start: 20231020, end: 20231109
  5. METRONIDAZOLE [Concomitant]
     Active Substance: METRONIDAZOLE
     Indication: Escherichia bacteraemia
     Dosage: 500 MG, 3X/DAY
     Dates: start: 20231030
  6. METRONIDAZOLE [Concomitant]
     Active Substance: METRONIDAZOLE
     Indication: Klebsiella infection
  7. MEROPENEM [Concomitant]
     Active Substance: MEROPENEM
     Indication: Escherichia bacteraemia
     Dosage: 2000 MG, 3X/DAY
     Route: 042
     Dates: start: 20231027, end: 20231030
  8. MEROPENEM [Concomitant]
     Active Substance: MEROPENEM
     Indication: Klebsiella infection
  9. CEFTAZIDIME [Concomitant]
     Active Substance: CEFTAZIDIME
     Indication: Escherichia bacteraemia
     Dosage: 2000 MG, 3X/DAY
     Dates: start: 20231030, end: 20231109
  10. CEFTAZIDIME [Concomitant]
     Active Substance: CEFTAZIDIME
     Indication: Klebsiella infection
  11. PANTOPRAZOLE [Concomitant]
     Active Substance: PANTOPRAZOLE
     Indication: Gastrointestinal haemorrhage
     Dosage: 40 MG, 1X/DAY
     Route: 042
     Dates: start: 20231029
  12. CASPOFUNGIN [Concomitant]
     Active Substance: CASPOFUNGIN
     Indication: Stomatitis
     Dosage: 50 MG, 1X/DAY
     Route: 042
     Dates: start: 20231018, end: 20231109
  13. KARDEGIC [Concomitant]
     Active Substance: ASPIRIN DL-LYSINE
     Dosage: 1 DF, 2X/DAY
  14. EZETIMIBE/ATORVASTAIN GH [Concomitant]
     Dosage: UNK
  15. METFORMIN [Concomitant]
     Active Substance: METFORMIN HYDROCHLORIDE
     Dosage: 1 DF, 3X/DAY
  16. SITAGLIPTIN [Concomitant]
     Active Substance: SITAGLIPTIN
     Dosage: 1 DF, 1X/DAY
  17. HERBALS\SAW PALMETTO [Concomitant]
     Active Substance: HERBALS\SAW PALMETTO
     Dosage: UNK, 2X/DAY

REACTIONS (2)
  - Hyperlactacidaemia [Recovered/Resolved]
  - Off label use [Unknown]

NARRATIVE: CASE EVENT DATE: 20231015
